FAERS Safety Report 6553734-7 (Version None)
Quarter: 2010Q1

REPORT INFORMATION
  Report Type: 
  Country: None (occurrence: None)
  Receive Date: 20100127
  Receipt Date: 20091228
  Transmission Date: 20100710
  Serious: Yes (Hospitalization, Other)
  Sender: FDA-Public Use
  Company Number: PHHY2009BR58700

PATIENT
  Sex: Female

DRUGS (5)
  1. FORASEQ [Suspect]
     Indication: ASTHMA
     Dosage: 12/400 MCG: TWICE A DAY
  2. OMEPRAZOL [Concomitant]
     Dosage: UNK
  3. CALCIUM [Concomitant]
     Dosage: UNK
  4. FLUIMICIL [Concomitant]
     Dosage: UNK
  5. METICORTEN [Concomitant]
     Dosage: UNK

REACTIONS (5)
  - ABDOMINAL DISCOMFORT [None]
  - ASTHMA [None]
  - DYSPNOEA [None]
  - INFLUENZA [None]
  - PNEUMONIA [None]
